FAERS Safety Report 10459707 (Version 2)
Quarter: 2014Q4

REPORT INFORMATION
  Report Type: Report from Study
  Country: US (occurrence: US)
  Receive Date: 20140917
  Receipt Date: 20141120
  Transmission Date: 20150528
  Serious: Yes (Hospitalization, Other)
  Sender: FDA-Public Use
  Company Number: US-TEVA-507919USA

PATIENT
  Age: 67 Year
  Sex: Male

DRUGS (2)
  1. COPAXONE [Suspect]
     Active Substance: GLATIRAMER ACETATE
     Indication: MULTIPLE SCLEROSIS
     Dates: start: 20081005
  2. FLUDROCORTISONE [Suspect]
     Active Substance: FLUDROCORTISONE
     Indication: ORTHOSTATIC HYPOTENSION
     Route: 065

REACTIONS (6)
  - Gait disturbance [Recovering/Resolving]
  - Orthostatic hypotension [Recovering/Resolving]
  - Ejection fraction decreased [Unknown]
  - Multiple sclerosis relapse [Recovering/Resolving]
  - Loss of consciousness [Recovering/Resolving]
  - Cardiac failure acute [Recovering/Resolving]

NARRATIVE: CASE EVENT DATE: 2012
